FAERS Safety Report 11225131 (Version 2)
Quarter: 2015Q3

REPORT INFORMATION
  Report Type: Spontaneous
  Country: FR (occurrence: FR)
  Receive Date: 20150629
  Receipt Date: 20150923
  Transmission Date: 20151125
  Serious: Yes (Hospitalization)
  Sender: FDA-Public Use
  Company Number: FR-PFIZER INC-2015208876

PATIENT
  Age: 68 Year
  Sex: Female

DRUGS (2)
  1. ZYVOXID [Concomitant]
     Active Substance: LINEZOLID
     Indication: ERYSIPELAS
     Dosage: UNK
     Dates: start: 20150507, end: 20150512
  2. TAZOCILLINE [Suspect]
     Active Substance: PIPERACILLIN SODIUM\TAZOBACTAM SODIUM
     Indication: ERYSIPELAS
     Dosage: UNK
     Dates: start: 20150507, end: 20150511

REACTIONS (5)
  - Persecutory delusion [Recovered/Resolved]
  - Mutism [Recovered/Resolved]
  - Aggression [Recovered/Resolved]
  - Confusional state [Recovered/Resolved]
  - Drug level increased [Unknown]

NARRATIVE: CASE EVENT DATE: 201505
